FAERS Safety Report 4803817-4 (Version None)
Quarter: 2005Q4

REPORT INFORMATION
  Report Type: 
  Country: None (occurrence: None)
  Receive Date: 20051014
  Receipt Date: 20051003
  Transmission Date: 20060501
  Serious: Yes (Other)
  Sender: FDA-Public Use
  Company Number: A-CH2005-10629

PATIENT
  Age: 66 Year
  Sex: Male
  Weight: 70 kg

DRUGS (5)
  1. ZAVESCA [Suspect]
     Indication: GAUCHER'S DISEASE
     Dosage: 100 MG, TID, ORAL
     Route: 048
     Dates: start: 20040927, end: 20050904
  2. EFFERALGAN (PARACETAMOL) [Concomitant]
  3. CODEINE (CODEINE) [Concomitant]
  4. LEXOMIL (BROMAZEPAM) [Concomitant]
  5. PAROXETINE HYDROCHLORIDE [Concomitant]

REACTIONS (12)
  - BALANCE DISORDER [None]
  - BONE PAIN [None]
  - DISLOCATION OF JOINT PROSTHESIS [None]
  - DIZZINESS [None]
  - FALL [None]
  - HEADACHE [None]
  - HIP FRACTURE [None]
  - HYPOTENSION [None]
  - LOSS OF CONSCIOUSNESS [None]
  - LUNG CARCINOMA CELL TYPE UNSPECIFIED RECURRENT [None]
  - MALAISE [None]
  - VERTIGO [None]
